FAERS Safety Report 18298931 (Version 3)
Quarter: 2021Q4

REPORT INFORMATION
  Report Type: Spontaneous
  Country: US (occurrence: None)
  Receive Date: 20200923
  Receipt Date: 20211129
  Transmission Date: 20220303
  Serious: No
  Sender: FDA-Public Use
  Company Number: US-ROCHE-2681952

PATIENT
  Sex: Female

DRUGS (3)
  1. HERCEPTIN [Suspect]
     Active Substance: TRASTUZUMAB
     Indication: Breast cancer female
     Route: 065
  2. TUKYSA [Suspect]
     Active Substance: TUCATINIB
     Indication: Breast cancer female
     Route: 065
  3. TUKYSA [Suspect]
     Active Substance: TUCATINIB
     Dosage: ONGOING: UNKNOWN
     Route: 065
     Dates: start: 20200731

REACTIONS (11)
  - Illness [Unknown]
  - Asthenia [Unknown]
  - Pruritus [Unknown]
  - Onychoclasis [Unknown]
  - Skin fissures [Unknown]
  - Vomiting [Unknown]
  - Nausea [Recovered/Resolved]
  - Product dose omission in error [Unknown]
  - Blood potassium decreased [Unknown]
  - Weight decreased [Unknown]
  - Diarrhoea [Not Recovered/Not Resolved]
